FAERS Safety Report 7097622-9 (Version None)
Quarter: 2010Q4

REPORT INFORMATION
  Report Type: 
  Country: None (occurrence: None)
  Receive Date: 20101112
  Receipt Date: 20101110
  Transmission Date: 20110411
  Serious: Yes (Hospitalization)
  Sender: FDA-Public Use
  Company Number: FR-BIOGENIDEC-2010BI035278

PATIENT
  Age: 39 Year
  Sex: Female

DRUGS (8)
  1. TYSABRI [Suspect]
     Indication: RELAPSING-REMITTING MULTIPLE SCLEROSIS
     Route: 042
     Dates: start: 20070701, end: 20100929
  2. PREVISCAN [Concomitant]
     Indication: DEEP VEIN THROMBOSIS
  3. LIORESAL [Concomitant]
  4. MANTADIX [Concomitant]
  5. XATRAL [Concomitant]
  6. NEURONTIN [Concomitant]
  7. DITROPAN [Concomitant]
  8. RIVOTRIL [Concomitant]

REACTIONS (1)
  - PROGRESSIVE MULTIFOCAL LEUKOENCEPHALOPATHY [None]
